FAERS Safety Report 4504910-6 (Version None)
Quarter: 2004Q4

REPORT INFORMATION
  Report Type: 
  Country: None (occurrence: None)
  Receive Date: 20040928
  Receipt Date: 20040726
  Transmission Date: 20050328
  Serious: No
  Sender: FDA-Public Use
  Company Number: 04P-163-0268973-00

PATIENT
  Age: 68 Year
  Sex: 0

DRUGS (8)
  1. HUMIRA [Suspect]
     Indication: RHEUMATOID ARTHRITIS
     Dosage: 40 MG, 1 IN 2 WK, SUBCUTANEOUS
     Route: 058
     Dates: start: 20030701, end: 20040621
  2. HUMIRA [Suspect]
     Indication: RHEUMATOID ARTHRITIS
     Dosage: 40 MG, 1 IN 2 WK, SUBCUTANEOUS
     Route: 058
     Dates: start: 20040705
  3. METHOTREXATE [Concomitant]
  4. PREDNISONE [Concomitant]
  5. DIOVAN [Concomitant]
  6. CALCIUM [Concomitant]
  7. OXYVIT [Concomitant]
  8. ERGOCALCIFEROL [Concomitant]

REACTIONS (2)
  - FATIGUE [None]
  - MACULAR HOLE [None]
